FAERS Safety Report 5781206-6 (Version None)
Quarter: 2008Q2

REPORT INFORMATION
  Report Type: 
  Country: None (occurrence: None)
  Receive Date: 20080618
  Receipt Date: 20080603
  Transmission Date: 20081010
  Serious: Yes (Hospitalization, Other)
  Sender: FDA-Public Use
  Company Number: 234422J08USA

PATIENT
  Age: 69 Year
  Sex: Female
  Weight: 68.0396 kg

DRUGS (5)
  1. REBIF [Suspect]
     Indication: MULTIPLE SCLEROSIS
     Dosage: 44 MCG, 3 IN 1 WEEKS, SUBCUTANEOUS
     Route: 058
  2. PANTOPRAZOLE SODIUM [Concomitant]
  3. LOTREL [Concomitant]
  4. TOPROL-XL [Concomitant]
  5. VYTORIN [Concomitant]

REACTIONS (5)
  - COLONIC POLYP [None]
  - FACIAL PAIN [None]
  - GASTROINTESTINAL ULCER HAEMORRHAGE [None]
  - HAEMATOCHEZIA [None]
  - PAIN IN JAW [None]
